FAERS Safety Report 18843608 (Version 1)
Quarter: 2021Q1

REPORT INFORMATION
  Report Type: Report from Study
  Country: CA (occurrence: CA)
  Receive Date: 20210203
  Receipt Date: 20210203
  Transmission Date: 20210419
  Serious: No
  Sender: FDA-Public Use
  Company Number: CA-EXELIXIS-CABO-20027963

PATIENT
  Sex: Male

DRUGS (7)
  1. LEVETIRACETAM. [Concomitant]
     Active Substance: LEVETIRACETAM
  2. ATIVAN [Concomitant]
     Active Substance: LORAZEPAM
  3. PREGABALINE [Concomitant]
     Active Substance: PREGABALIN
  4. METONIA [Concomitant]
     Active Substance: METOCLOPRAMIDE
  5. PANTOPRAZOLE [Concomitant]
     Active Substance: PANTOPRAZOLE
  6. CABOMETYX [Suspect]
     Active Substance: CABOZANTINIB S-MALATE
     Indication: RENAL CELL CARCINOMA
     Dosage: 40 MG, QD (1 MONTH ON, 1 WEEK OFF )
     Route: 048
     Dates: start: 20190211
  7. MORPHINE [Concomitant]
     Active Substance: MORPHINE

REACTIONS (2)
  - Drug ineffective [Unknown]
  - Off label use [Unknown]
